FAERS Safety Report 9114676 (Version 2)
Quarter: 2013Q1

REPORT INFORMATION
  Report Type: Spontaneous
  Country: IT (occurrence: IT)
  Receive Date: 20130208
  Receipt Date: 20130325
  Transmission Date: 20140127
  Serious: Yes (Hospitalization)
  Sender: FDA-Public Use
  Company Number: IT-ROCHE-1188568

PATIENT
  Age: 72 Year
  Sex: Female

DRUGS (3)
  1. AVASTIN [Suspect]
     Indication: RECTAL CANCER
     Route: 042
     Dates: start: 20100729, end: 20120713
  2. CALCIUM LEVOFOLINATE [Concomitant]
     Indication: RECTAL CANCER
     Route: 042
     Dates: start: 20120425, end: 20120711
  3. FLUOROURACILE [Concomitant]
     Indication: RECTAL CANCER
     Route: 042
     Dates: start: 20120425, end: 20120712

REACTIONS (4)
  - Anaemia [Recovered/Resolved]
  - Renal haemorrhage [Recovered/Resolved]
  - Urinary bladder haemorrhage [Recovered/Resolved]
  - Perirenal haematoma [Recovered/Resolved]
